FAERS Safety Report 17189846 (Version 2)
Quarter: 2020Q1

REPORT INFORMATION
  Report Type: Spontaneous
  Country: JP (occurrence: JP)
  Receive Date: 20191223
  Receipt Date: 20200109
  Transmission Date: 20200409
  Serious: Yes (Other)
  Sender: FDA-Public Use
  Company Number: JP-HTU-2019JP020010

PATIENT
  Age: 78 Year
  Sex: Male
  Weight: 70 kg

DRUGS (26)
  1. ALOXI [Suspect]
     Active Substance: PALONOSETRON HYDROCHLORIDE
     Indication: PROPHYLAXIS OF NAUSEA AND VOMITING
     Dosage: 0.75 MILLIGRAM, QD
     Route: 042
     Dates: start: 20191203, end: 20191203
  2. DEXAMETHASONE. [Suspect]
     Active Substance: DEXAMETHASONE
     Dosage: 6.6 MILLIGRAM, QD
     Dates: start: 20191204, end: 20191206
  3. CISPLATIN. [Concomitant]
     Active Substance: CISPLATIN
     Indication: SQUAMOUS CELL CARCINOMA OF LUNG
     Dosage: 135 MILLIGRAM, QD
     Route: 042
     Dates: start: 20191203, end: 20191203
  4. ACETAMINOPHEN. [Concomitant]
     Active Substance: ACETAMINOPHEN
     Indication: CHEST PAIN
     Dosage: 400 MILLIGRAM, PRN
  5. LULICONAZOLE. [Concomitant]
     Active Substance: LULICONAZOLE
     Indication: ECZEMA
     Dosage: UNK
     Route: 061
     Dates: start: 20160302
  6. OXYBUPROCAINE HYDROCHLORIDE [Concomitant]
     Active Substance: BENOXINATE HYDROCHLORIDE
     Indication: LACRIMATION INCREASED
     Route: 031
  7. PRANOPROFEN [Concomitant]
     Active Substance: PRANOPROFEN
     Indication: LACRIMATION INCREASED
     Route: 031
  8. VINORELBINE [Concomitant]
     Active Substance: VINORELBINE TARTRATE
     Indication: SQUAMOUS CELL CARCINOMA OF LUNG
     Dosage: 34 MILLIGRAM, QD
     Route: 042
     Dates: start: 20191203, end: 20191210
  9. DIFLUPREDNATE [Concomitant]
     Active Substance: DIFLUPREDNATE
  10. ATORVASTATIN CALCIUM TRIHYDRATE [Concomitant]
     Active Substance: ATORVASTATIN CALCIUM
     Indication: BLOOD CHOLESTEROL INCREASED
     Dosage: 10 MILLIGRAM, QD
     Route: 048
     Dates: start: 20140717
  11. LACTEC [Concomitant]
     Active Substance: CALCIUM CHLORIDE ANHYDROUS\POTASSIUM CHLORIDE\SODIUM CHLORIDE\SODIUM LACTATE
     Indication: BLOOD CREATININE INCREASED
     Dosage: 1000 MILLILITER, QD
     Dates: start: 20191212
  12. AMOXICILLIN. [Concomitant]
     Active Substance: AMOXICILLIN
     Dosage: 750 MILLIGRAM, QD
  13. TAMSULOSIN HYDROCHLORIDE. [Concomitant]
     Active Substance: TAMSULOSIN HYDROCHLORIDE
     Indication: PROSTATIC OBSTRUCTION
     Dosage: 0.2 MILLIGRAM, QD
     Dates: start: 20180215
  14. FELBINAC [Concomitant]
     Active Substance: FELBINAC
     Indication: ARTHRITIS
     Route: 061
  15. INDOMETACIN [Concomitant]
     Active Substance: INDOMETHACIN
     Indication: ARTHRITIS
     Route: 061
  16. ALOXI [Suspect]
     Active Substance: PALONOSETRON HYDROCHLORIDE
     Dosage: 9.9 MILLIGRAM, QD
     Route: 042
     Dates: start: 20191203, end: 20191203
  17. ALOXI [Suspect]
     Active Substance: PALONOSETRON HYDROCHLORIDE
     Dosage: 6.6 MILLIGRAM, TID
     Route: 042
     Dates: start: 20191204, end: 20191206
  18. NIFEDIPINE. [Concomitant]
     Active Substance: NIFEDIPINE
  19. MAGNESIUM OXIDE. [Concomitant]
     Active Substance: MAGNESIUM OXIDE
     Indication: CONSTIPATION
     Dosage: 1980 MILLIGRAM, QD
     Route: 048
     Dates: start: 20191209, end: 20191215
  20. ESZOPICLONE. [Concomitant]
     Active Substance: ESZOPICLONE
     Indication: INSOMNIA
     Dosage: 1 MILLIGRAM, QD
     Route: 048
     Dates: start: 20191204
  21. DEXAMETHASONE. [Suspect]
     Active Substance: DEXAMETHASONE
     Indication: PROPHYLAXIS OF NAUSEA AND VOMITING
     Dosage: 9.9 MILLIGRAM, SINGLE
     Route: 042
     Dates: start: 20191203, end: 20191203
  22. VALSARTAN. [Concomitant]
     Active Substance: VALSARTAN
     Indication: HYPERTENSION
     Dosage: 80 MILLIGRAM, QD
     Route: 048
     Dates: start: 20140717
  23. HYDROCHLOROTHIAZIDE. [Concomitant]
     Active Substance: HYDROCHLOROTHIAZIDE
     Indication: HYPERTENSION
     Dosage: 12.5 MILLIGRAM, QD
  24. BETAMETHASONE VALERATE W/GENTAMICIN SULFATE [Concomitant]
     Dosage: UNK
     Route: 061
     Dates: start: 20160302
  25. GLYCYRRHETINIC ACID [Concomitant]
     Dosage: UNK
     Route: 061
     Dates: start: 20101220
  26. AMOXICILLIN TRIHYDRATE AND POTASSIUM CLAVULAN [Concomitant]
     Active Substance: AMOXICILLIN\CLAVULANATE POTASSIUM
     Dosage: 3 DOSAGE FORM, QD
     Dates: start: 20191212, end: 20191214

REACTIONS (1)
  - Pneumonitis [Recovering/Resolving]

NARRATIVE: CASE EVENT DATE: 20191213
